FAERS Safety Report 5947401-8 (Version None)
Quarter: 2008Q4

REPORT INFORMATION
  Report Type: 
  Country: None (occurrence: None)
  Receive Date: 20081110
  Receipt Date: 20081029
  Transmission Date: 20090506
  Serious: Yes (Other)
  Sender: FDA-Public Use
  Company Number: JP-PFIZER INC-2008092105

PATIENT
  Age: 11 Day
  Sex: Male

DRUGS (5)
  1. HYDROCORTISONE ACETATE [Suspect]
     Indication: HYPERINSULINAEMIA
     Dosage: TEXT:TDD:5 MG/KG
  2. HYDROCORTISONE ACETATE [Suspect]
     Indication: HYPOGLYCAEMIA
  3. GLUCAGON [Suspect]
  4. SANDOSTATIN [Suspect]
     Route: 042
  5. DIAZOXIDE [Suspect]

REACTIONS (1)
  - RENAL FAILURE ACUTE [None]
